FAERS Safety Report 4279080-2 (Version None)
Quarter: 2004Q1

REPORT INFORMATION
  Report Type: 
  Country: None (occurrence: None)
  Receive Date: 20040126
  Receipt Date: 20020115
  Transmission Date: 20041129
  Serious: Yes (Other)
  Sender: FDA-Public Use
  Company Number: WAES 0201FRA00049

PATIENT
  Age: 74 Year
  Sex: Female

DRUGS (4)
  1. FOSAMAX [Suspect]
     Indication: OSTEOPOROSIS POSTMENOPAUSAL
     Route: 048
     Dates: start: 19970501, end: 20030101
  2. FOSAMAX [Suspect]
     Route: 048
     Dates: start: 20030101
  3. FELODIPINE [Concomitant]
     Indication: HYPERTENSION
     Route: 048
     Dates: end: 20010901
  4. LORATADINE [Concomitant]
     Indication: HYPERSENSITIVITY
     Route: 048

REACTIONS (2)
  - COMPRESSION FRACTURE [None]
  - SPINAL COMPRESSION FRACTURE [None]
